FAERS Safety Report 7643786-5 (Version None)
Quarter: 2011Q3

REPORT INFORMATION
  Report Type: 
  Country: None (occurrence: None)
  Receive Date: 20110722
  Receipt Date: 20110719
  Transmission Date: 20111222
  Serious: Yes (Hospitalization, Other)
  Sender: FDA-Public Use
  Company Number: 201110625

PATIENT
  Sex: Male

DRUGS (2)
  1. MORPHINE [Concomitant]
  2. LIORESAL [Suspect]
     Indication: MUSCLE SPASTICITY
     Dosage: DAILY, INTRATHECAL
     Route: 037

REACTIONS (33)
  - CONVULSION [None]
  - PRURITUS [None]
  - PERIPHERAL COLDNESS [None]
  - INFECTION [None]
  - BURNING SENSATION [None]
  - PURULENCE [None]
  - WEIGHT DECREASED [None]
  - EYE IRRITATION [None]
  - FEELING HOT [None]
  - IMPLANT SITE SCAR [None]
  - INFUSION SITE MASS [None]
  - VOMITING [None]
  - DYSURIA [None]
  - WITHDRAWAL SYNDROME [None]
  - PYREXIA [None]
  - PARAESTHESIA [None]
  - TINNITUS [None]
  - DEVICE FAILURE [None]
  - URTICARIA [None]
  - MUSCLE SPASTICITY [None]
  - CONDITION AGGRAVATED [None]
  - MUSCLE SPASMS [None]
  - INSOMNIA [None]
  - HYPOAESTHESIA [None]
  - SKIN ULCER [None]
  - DRUG INEFFECTIVE [None]
  - HYPERSENSITIVITY [None]
  - DIARRHOEA [None]
  - HYPOPNOEA [None]
  - COLD SWEAT [None]
  - HYPERTENSION [None]
  - HYPOPHAGIA [None]
  - PALPITATIONS [None]
